FAERS Safety Report 7818597-8 (Version None)
Quarter: 2011Q4

REPORT INFORMATION
  Report Type: 
  Country: None (occurrence: None)
  Receive Date: 20111017
  Receipt Date: 20111006
  Transmission Date: 20120403
  Serious: Yes (Hospitalization, Other)
  Sender: FDA-Public Use
  Company Number: US-ASTRAZENECA-2010SE37247

PATIENT
  Age: 93 Year
  Sex: Female

DRUGS (14)
  1. LIDODERM [Concomitant]
     Dosage: ON TO RIGHT HIP ON Q12H AND OFF Q12H
  2. PLAVIX [Concomitant]
  3. NAPROXEN [Concomitant]
     Indication: PAIN
     Dosage: BID PRN TO TAKE WITH FOOD
     Route: 048
  4. SYNTHROID [Concomitant]
  5. NORVASC [Concomitant]
  6. COLACE [Concomitant]
     Dosage: BID PRN
  7. NEXIUM [Suspect]
     Indication: GASTROOESOPHAGEAL REFLUX DISEASE
     Route: 048
  8. METOPROLOL SUCCINATE EXTENDED RELEASE [Concomitant]
  9. PRAVASTATIN [Concomitant]
  10. NIFEREX [Concomitant]
  11. LISINOPRIL [Concomitant]
  12. NITROGLYCERIN [Concomitant]
  13. TRAMADOL HCL [Concomitant]
     Indication: PAIN
     Dosage: TWO TABLETS Q6H PRN
  14. ASPIRIN [Concomitant]

REACTIONS (13)
  - CORONARY ARTERY DISEASE [None]
  - UPPER LIMB FRACTURE [None]
  - HYPOTHYROIDISM [None]
  - FALL [None]
  - PLEURITIC PAIN [None]
  - GAIT DISTURBANCE [None]
  - INAPPROPRIATE ANTIDIURETIC HORMONE SECRETION [None]
  - CONTUSION [None]
  - ARTHRALGIA [None]
  - JOINT SWELLING [None]
  - DYSLIPIDAEMIA [None]
  - GASTROENTERITIS [None]
  - HYPERTENSION [None]
